FAERS Safety Report 14322460 (Version 3)
Quarter: 2018Q1

REPORT INFORMATION
  Report Type: Spontaneous
  Country: US (occurrence: US)
  Receive Date: 20171225
  Receipt Date: 20180301
  Transmission Date: 20180509
  Serious: Yes (Other)
  Sender: FDA-Public Use
  Company Number: US-AMGEN-USASP2017189095

PATIENT
  Age: 82 Year
  Sex: Male
  Weight: 78.64 kg

DRUGS (2)
  1. NEUPOGEN [Suspect]
     Active Substance: FILGRASTIM
     Indication: LEUKOPENIA
     Dosage: 480 MUG, QWK (FOR 6 MONTHS)
     Route: 058
     Dates: start: 20170927, end: 20171129
  2. NEUPOGEN [Suspect]
     Active Substance: FILGRASTIM
     Indication: RECTAL CANCER STAGE III

REACTIONS (3)
  - Neutrophil count decreased [Unknown]
  - Off label use [Unknown]
  - Refusal of treatment by patient [Unknown]

NARRATIVE: CASE EVENT DATE: 2017
